FAERS Safety Report 5901069-5 (Version None)
Quarter: 2008Q3

REPORT INFORMATION
  Report Type: 
  Country: None (occurrence: None)
  Receive Date: 20080929
  Receipt Date: 20070618
  Transmission Date: 20090109
  Serious: No
  Sender: FDA-Public Use
  Company Number: US-BAYER-200711763BWH

PATIENT
  Age: 92 Year

DRUGS (1)
  1. AVELOX [Suspect]
     Indication: PNEUMONIA
     Route: 040
     Dates: start: 20070512

REACTIONS (2)
  - INFUSION SITE ERYTHEMA [None]
  - INFUSION SITE PRURITUS [None]
